FAERS Safety Report 18909114 (Version 1)
Quarter: 2021Q1

REPORT INFORMATION
  Report Type: Spontaneous
  Country: US (occurrence: US)
  Receive Date: 20210217
  Receipt Date: 20210217
  Transmission Date: 20210420
  Serious: Yes (Other)
  Sender: FDA-Public Use
  Company Number: None

PATIENT
  Age: 40 Year
  Sex: Female
  Weight: 76.5 kg

DRUGS (4)
  1. ESTRADIOL. [Concomitant]
     Active Substance: ESTRADIOL
  2. GABAPENTIN. [Concomitant]
     Active Substance: GABAPENTIN
  3. SUBOXONE [Concomitant]
     Active Substance: BUPRENORPHINE HYDROCHLORIDE\NALOXONE HYDROCHLORIDE
  4. BUPRENORPHINE AND NALOXONE SUBLINGUAL FILM [Suspect]
     Active Substance: BUPRENORPHINE HYDROCHLORIDE\NALOXONE HYDROCHLORIDE
     Indication: DRUG DEPENDENCE
     Dosage: ?          QUANTITY:1 SUBLINGUAL FILMS;?
     Route: 060
     Dates: start: 20210217, end: 20210217

REACTIONS (7)
  - Vomiting [None]
  - Product substitution issue [None]
  - Hyperhidrosis [None]
  - Pain [None]
  - Nausea [None]
  - Withdrawal syndrome [None]
  - Headache [None]

NARRATIVE: CASE EVENT DATE: 20210217
